FAERS Safety Report 9559758 (Version 1)
Quarter: 2013Q3

REPORT INFORMATION
  Report Type: Spontaneous
  Country: US (occurrence: None)
  Receive Date: 20130924
  Receipt Date: 20130924
  Transmission Date: 20140515
  Serious: Yes (Other)
  Sender: FDA-Public Use
  Company Number: AUR-APL-2013-07837

PATIENT
  Age: 61 Year
  Sex: Male

DRUGS (10)
  1. LISINOPRIL [Suspect]
     Indication: HYPERTENSION
     Dates: end: 2013
  2. BENICAR (OLMESARTAN MEDOXOMIL) [Suspect]
     Indication: HYPERTENSION
     Dates: start: 2010
  3. NIFEDIPINE(NIFEDIPINE) [Concomitant]
  4. ASPIRIN(ACETYLSALICYLIC ACID) [Concomitant]
  5. ALLOPURINOL(ALLOPURINOL) [Concomitant]
  6. GLYBURIDE(GLIBENCLAMIDE) [Concomitant]
  7. METFORMIN(METFORMIN) [Concomitant]
  8. NAPROXEN(NAPROXEN) [Concomitant]
  9. OMEPRAZOLE(OMEPRAZOLE) [Concomitant]
  10. TERAZOSIN(TERAZOSIN) [Concomitant]

REACTIONS (4)
  - Blood pressure inadequately controlled [None]
  - Prescribed overdose [None]
  - Renal disorder [None]
  - Blood creatinine increased [None]
